FAERS Safety Report 18598896 (Version 1)
Quarter: 2020Q4

REPORT INFORMATION
  Report Type: Spontaneous
  Country: US (occurrence: US)
  Receive Date: 20201210
  Receipt Date: 20201210
  Transmission Date: 20210114
  Serious: No
  Sender: FDA-Public Use
  Company Number: US-TEVA-2020-US-1857594

PATIENT
  Age: 61 Year
  Sex: Female

DRUGS (1)
  1. NEFAZODONE GENERIC [Suspect]
     Active Substance: NEFAZODONE
     Dosage: HALF A TABLET IN THE MORNING AND TWO WHOLE TABLETS AT NIGHT
     Route: 065

REACTIONS (5)
  - Product substitution issue [Unknown]
  - Headache [Unknown]
  - Abdominal discomfort [Unknown]
  - Insomnia [Unknown]
  - Quality of life decreased [Unknown]
